FAERS Safety Report 15991616 (Version 1)
Quarter: 2019Q1

REPORT INFORMATION
  Report Type: Spontaneous
  Country: IE (occurrence: IE)
  Receive Date: 20190221
  Receipt Date: 20190221
  Transmission Date: 20190418
  Serious: Yes (Life-Threatening, Hospitalization, Other)
  Sender: FDA-Public Use
  Company Number: PHHY2019IE024270

PATIENT
  Age: 29 Year
  Sex: Female
  Weight: 44 kg

DRUGS (8)
  1. PARACETAMOL [Suspect]
     Active Substance: ACETAMINOPHEN
     Indication: PAIN
     Dosage: 1 G, Q8H (3 DOSES ONLY)
     Route: 042
     Dates: start: 20190106, end: 20190107
  2. FERINJECT [Concomitant]
     Active Substance: FERRIC CARBOXYMALTOSE
     Indication: ANAEMIA
     Dosage: UNK
     Route: 065
  3. DESUNIN [Concomitant]
     Active Substance: CHOLECALCIFEROL
     Indication: MALNUTRITION
     Dosage: 800 IU, Q24H
     Route: 065
  4. SODIUM BICARBONATE. [Concomitant]
     Active Substance: SODIUM BICARBONATE
     Indication: PRODUCT USED FOR UNKNOWN INDICATION
     Dosage: 1200 MG, Q8H
     Route: 065
  5. VENLAFAXINE HYDROCLORIDE [Concomitant]
     Active Substance: VENLAFAXINE HYDROCHLORIDE
     Indication: PRODUCT USED FOR UNKNOWN INDICATION
     Dosage: 75 MG, Q24H
     Route: 065
  6. THIAMINE. [Concomitant]
     Active Substance: THIAMINE
     Indication: MALNUTRITION
     Dosage: 300 MG, UNK
     Route: 048
  7. PANTOPRAZOLE [Concomitant]
     Active Substance: PANTOPRAZOLE
     Indication: PROPHYLAXIS AGAINST GASTROINTESTINAL ULCER
     Dosage: 40 MG, Q24H
     Route: 065
  8. OLANZAPINE. [Concomitant]
     Active Substance: OLANZAPINE
     Indication: MENTAL DISORDER
     Dosage: 2.5 MG, Q24H
     Route: 065

REACTIONS (1)
  - Acute hepatic failure [Recovered/Resolved]

NARRATIVE: CASE EVENT DATE: 20190107
